FAERS Safety Report 7520180-9 (Version None)
Quarter: 2011Q2

REPORT INFORMATION
  Report Type: 
  Country: None (occurrence: None)
  Receive Date: 20110602
  Receipt Date: 20110203
  Transmission Date: 20111010
  Serious: No
  Sender: FDA-Public Use
  Company Number: US-BAYER-2011-039615

PATIENT
  Sex: Female
  Weight: 61 kg

DRUGS (1)
  1. ALEVE (CAPLET) [Suspect]
     Indication: ARTHRITIS
     Dosage: CONSUMER TOOK ALEVE EVERY SINGLE DAY. BOTTLE COUNT 24S
     Route: 048

REACTIONS (1)
  - NO ADVERSE EVENT [None]
